FAERS Safety Report 7704402-7 (Version None)
Quarter: 2011Q3

REPORT INFORMATION
  Report Type: 
  Country: None (occurrence: None)
  Receive Date: 20110823
  Receipt Date: 20110818
  Transmission Date: 20111222
  Serious: Yes (Other)
  Sender: FDA-Public Use
  Company Number: CA-TEVA-297163USA

PATIENT
  Age: 85 Year
  Sex: Male
  Weight: 99.88 kg

DRUGS (6)
  1. RAMIPRIL [Concomitant]
     Route: 048
  2. DUTASTERIDE [Suspect]
     Dosage: .0714 MILLIGRAM;
     Route: 048
  3. TAMSULOSIN HCL [Suspect]
     Dosage: .4 MILLIGRAM;
     Route: 048
  4. WARFARIN SODIUM [Concomitant]
     Route: 048
  5. BISOPROLOL FUMARATE [Concomitant]
     Route: 048
  6. HYDROCHLOROTHIAZIDE [Concomitant]
     Route: 048

REACTIONS (1)
  - BLOOD URINE PRESENT [None]
